FAERS Safety Report 9821021 (Version 1)
Quarter: 2014Q1

REPORT INFORMATION
  Report Type: Spontaneous
  Country: US (occurrence: US)
  Receive Date: 20140116
  Receipt Date: 20140116
  Transmission Date: 20141002
  Serious: Yes (Hospitalization)
  Sender: FDA-Public Use
  Company Number: US-BAYER-2014-006834

PATIENT
  Age: 39 Year
  Sex: Female
  Weight: 143.76 kg

DRUGS (6)
  1. YASMIN [Suspect]
  2. SYNTHROID [Concomitant]
  3. ATENOLOL [Concomitant]
  4. ZOLOFT [Concomitant]
  5. CARAFATE [Concomitant]
  6. PROTONIX [Concomitant]

REACTIONS (2)
  - Pulmonary embolism [None]
  - Deep vein thrombosis [None]
